FAERS Safety Report 19998323 (Version 1)
Quarter: 2021Q4

REPORT INFORMATION
  Report Type: Spontaneous
  Country: US (occurrence: US)
  Receive Date: 20211026
  Receipt Date: 20211026
  Transmission Date: 20220303
  Serious: Yes (Life-Threatening, Hospitalization, Other)
  Sender: FDA-Public Use
  Company Number: US-BRISTOL-MYERS SQUIBB COMPANY-BMS-2021-109960

PATIENT
  Age: 68 Year
  Sex: Male

DRUGS (2)
  1. APIXABAN [Interacting]
     Active Substance: APIXABAN
     Indication: Pulmonary embolism
     Route: 065
  2. TOCILIZUMAB [Interacting]
     Active Substance: TOCILIZUMAB
     Indication: COVID-19 pneumonia
     Route: 065

REACTIONS (2)
  - Embolism venous [Recovering/Resolving]
  - Drug interaction [Unknown]
